FAERS Safety Report 25758126 (Version 1)
Quarter: 2025Q3

REPORT INFORMATION
  Report Type: Spontaneous
  Country: JP (occurrence: JP)
  Receive Date: 20250903
  Receipt Date: 20250903
  Transmission Date: 20251021
  Serious: Yes (Other)
  Sender: NOVARTIS
  Company Number: JP-002147023-NVSJ2025JP008749

PATIENT

DRUGS (6)
  1. CLOFAZIMINE [Suspect]
     Active Substance: CLOFAZIMINE
     Indication: Pulmonary tuberculosis
     Route: 065
  2. DELAMANID [Concomitant]
     Active Substance: DELAMANID
     Indication: Pulmonary tuberculosis
     Route: 065
  3. CYCLOSERINE [Concomitant]
     Active Substance: CYCLOSERINE
     Indication: Pulmonary tuberculosis
     Route: 065
  4. LINEZOLID [Concomitant]
     Active Substance: LINEZOLID
     Indication: Pulmonary tuberculosis
     Route: 065
  5. BEDAQUILINE [Concomitant]
     Active Substance: BEDAQUILINE
     Indication: Pulmonary tuberculosis
     Route: 065
  6. BEDAQUILINE [Concomitant]
     Active Substance: BEDAQUILINE
     Route: 065

REACTIONS (3)
  - Electrocardiogram QT prolonged [Recovered/Resolved]
  - Torsade de pointes [Unknown]
  - Off label use [Unknown]
